FAERS Safety Report 19184331 (Version 4)
Quarter: 2022Q2

REPORT INFORMATION
  Report Type: Spontaneous
  Country: US (occurrence: US)
  Receive Date: 20210427
  Receipt Date: 20220411
  Transmission Date: 20220721
  Serious: Yes (Other)
  Sender: FDA-Public Use
  Company Number: US-GLAXOSMITHKLINE-US2021GSK091876

PATIENT
  Sex: Male
  Weight: 73.469 kg

DRUGS (3)
  1. RANITIDINE HYDROCHLORIDE [Suspect]
     Active Substance: RANITIDINE HYDROCHLORIDE
     Indication: Product used for unknown indication
     Dosage: UNK
     Route: 065
  2. RANITIDINE HYDROCHLORIDE [Suspect]
     Active Substance: RANITIDINE HYDROCHLORIDE
     Indication: Barrett^s oesophagus
     Dosage: 300 MG, QD
     Route: 048
     Dates: start: 20150119, end: 202003
  3. RANITIDINE HYDROCHLORIDE [Suspect]
     Active Substance: RANITIDINE HYDROCHLORIDE
     Indication: Barrett^s oesophagus
     Dosage: 300 MG, QD
     Route: 065
     Dates: start: 201501, end: 202003

REACTIONS (11)
  - Neoplasm malignant [Unknown]
  - Bladder cancer [Unknown]
  - Bladder perforation [Unknown]
  - Transitional cell carcinoma [Unknown]
  - Bladder neoplasm [Unknown]
  - Bladder dilatation [Unknown]
  - Bladder hypertrophy [Unknown]
  - Bladder trabeculation [Unknown]
  - Renal cyst [Unknown]
  - Bladder mass [Unknown]
  - Calculus bladder [Unknown]
